FAERS Safety Report 17906459 (Version 1)
Quarter: 2020Q2

REPORT INFORMATION
  Report Type: Spontaneous
  Country: US (occurrence: US)
  Receive Date: 20200616
  Receipt Date: 20200616
  Transmission Date: 20200714
  Serious: No
  Sender: FDA-Public Use
  Company Number: US-ROCHE-2386097

PATIENT
  Sex: Female

DRUGS (6)
  1. MARINOL [Concomitant]
     Active Substance: DRONABINOL
  2. MECLIZINE [Concomitant]
     Active Substance: MECLIZINE HYDROCHLORIDE
  3. ATORVASTATIN CALCIUM. [Concomitant]
     Active Substance: ATORVASTATIN CALCIUM
  4. SINGULAIR [Concomitant]
     Active Substance: MONTELUKAST SODIUM
  5. TOPIRAMATE. [Concomitant]
     Active Substance: TOPIRAMATE
  6. ACTEMRA [Suspect]
     Active Substance: TOCILIZUMAB
     Indication: RHEUMATOID ARTHRITIS
     Route: 058
     Dates: start: 20190628

REACTIONS (3)
  - Ear discomfort [Unknown]
  - Vertigo [Unknown]
  - Bronchitis [Unknown]
